FAERS Safety Report 21595129 (Version 2)
Quarter: 2022Q4

REPORT INFORMATION
  Report Type: Report from Study
  Country: US (occurrence: US)
  Receive Date: 20221115
  Receipt Date: 20221215
  Transmission Date: 20230113
  Serious: No
  Sender: FDA-Public Use
  Company Number: US-002147023-NVSC2022US256725

PATIENT
  Age: 71 Year
  Sex: Male

DRUGS (1)
  1. LEQVIO [Suspect]
     Active Substance: INCLISIRAN SODIUM
     Indication: Product used for unknown indication
     Dosage: UNK
     Route: 058
     Dates: start: 20221013

REACTIONS (5)
  - Blood cholesterol increased [Recovered/Resolved]
  - Blood cholesterol decreased [Recovered/Resolved]
  - Low density lipoprotein decreased [Recovered/Resolved]
  - Blood triglycerides increased [Recovered/Resolved]
  - Injection site pain [Recovered/Resolved]

NARRATIVE: CASE EVENT DATE: 20221013
